FAERS Safety Report 4876781-X (Version None)
Quarter: 2005Q4

REPORT INFORMATION
  Report Type: 
  Country: None (occurrence: None)
  Receive Date: 20051206
  Receipt Date: 20050802
  Transmission Date: 20060501
  Serious: No
  Sender: FDA-Public Use
  Company Number: USA0508104355

PATIENT
  Age: 76 Year
  Sex: Female
  Weight: 73 kg

DRUGS (2)
  1. CYMBALTA [Suspect]
     Dosage: 60 MG DAY
     Dates: start: 20050729
  2. ASPIRIN [Concomitant]

REACTIONS (8)
  - DRY MOUTH [None]
  - FATIGUE [None]
  - FEELING HOT [None]
  - HYPOAESTHESIA [None]
  - NAUSEA [None]
  - PAIN IN EXTREMITY [None]
  - PARAESTHESIA [None]
  - STOMACH DISCOMFORT [None]
